FAERS Safety Report 24338952 (Version 1)
Quarter: 2024Q3

REPORT INFORMATION
  Report Type: Spontaneous
  Country: US (occurrence: None)
  Receive Date: 20240918
  Receipt Date: 20240918
  Transmission Date: 20241017
  Serious: Yes (Hospitalization)
  Sender: Public
  Company Number: None

PATIENT
  Sex: Male

DRUGS (3)
  1. XOLAIR [Suspect]
     Active Substance: OMALIZUMAB
     Indication: Psoriatic arthropathy
     Dosage: FREQ: INJECT 2 SYRINGES (300 MG) UNDER THE SKIN (SUBCUTANEOUS INJECTION) EVERY 2 WEEKS.
     Route: 058
     Dates: start: 20231202
  2. DUPIXENT [Concomitant]
     Active Substance: DUPILUMAB
  3. OTEZLA [Concomitant]
     Active Substance: APREMILAST

REACTIONS (2)
  - Myocardial infarction [None]
  - Atrioventricular block [None]
